FAERS Safety Report 7599330-4 (Version None)
Quarter: 2011Q3

REPORT INFORMATION
  Report Type: 
  Country: None (occurrence: None)
  Receive Date: 20110711
  Receipt Date: 20110606
  Transmission Date: 20111222
  Serious: No
  Sender: FDA-Public Use
  Company Number: US-BAYER-2011-049245

PATIENT
  Age: 83 Year
  Sex: Male
  Weight: 80 kg

DRUGS (4)
  1. MYSOLINE [Concomitant]
  2. CALCITRIOL [Concomitant]
  3. NAPROXEN (ALEVE) [Suspect]
     Indication: ARTHRITIS
     Dosage: 440 MG, QD
     Route: 048
     Dates: start: 20110501, end: 20110606
  4. PLAVIX [Concomitant]

REACTIONS (1)
  - NO ADVERSE EVENT [None]
